FAERS Safety Report 7985505-9 (Version None)
Quarter: 2011Q4

REPORT INFORMATION
  Report Type: 
  Country: None (occurrence: None)
  Receive Date: 20111216
  Receipt Date: 20111205
  Transmission Date: 20120403
  Serious: Yes (Hospitalization)
  Sender: FDA-Public Use
  Company Number: US-SANOFI-AVENTIS-2011SA081333

PATIENT
  Age: 71 Year
  Sex: Female
  Weight: 65 kg

DRUGS (7)
  1. CARBOPLATIN [Suspect]
     Indication: OVARIAN EPITHELIAL CANCER
     Route: 033
  2. BEVACIZUMAB [Suspect]
     Indication: OVARIAN EPITHELIAL CANCER
     Route: 042
     Dates: start: 20110502
  3. PACLITAXEL [Suspect]
     Route: 042
  4. PACLITAXEL [Suspect]
     Indication: OVARIAN EPITHELIAL CANCER
     Route: 042
  5. DOCETAXEL [Suspect]
     Route: 065
     Dates: start: 20110108
  6. BEVACIZUMAB [Suspect]
     Route: 042
  7. CARBOPLATIN [Suspect]
     Dosage: DAILY DOSE: 5 AUC
     Route: 033

REACTIONS (6)
  - NEUTROPHIL COUNT DECREASED [None]
  - URINARY TRACT INFECTION [None]
  - WHITE BLOOD CELL COUNT DECREASED [None]
  - NAUSEA [None]
  - HYPOMAGNESAEMIA [None]
  - DYSPNOEA [None]
